FAERS Safety Report 4887998-2 (Version None)
Quarter: 2006Q1

REPORT INFORMATION
  Report Type: 
  Country: None (occurrence: None)
  Receive Date: 20060123
  Receipt Date: 20051206
  Transmission Date: 20060701
  Serious: Yes (Death)
  Sender: FDA-Public Use
  Company Number: IE-AVENTIS-200520745GDDC

PATIENT
  Sex: Male

DRUGS (6)
  1. LANTUS [Suspect]
  2. THEOPHYLLINE [Concomitant]
     Route: 048
  3. SPIRIVA [Concomitant]
     Route: 055
  4. SERETIDE [Concomitant]
     Route: 055
  5. NEXIUM [Concomitant]
     Route: 048
  6. SALBUTAMOL [Concomitant]
     Route: 055

REACTIONS (2)
  - DEATH [None]
  - PHARMACEUTICAL PRODUCT COMPLAINT [None]
